FAERS Safety Report 20172706 (Version 5)
Quarter: 2022Q2

REPORT INFORMATION
  Report Type: Spontaneous
  Country: JP (occurrence: JP)
  Receive Date: 20211211
  Receipt Date: 20220409
  Transmission Date: 20220721
  Serious: Yes (Hospitalization, Other)
  Sender: FDA-Public Use
  Company Number: JP-UNITED THERAPEUTICS-UNT-2021-021465

PATIENT
  Age: 5 Year
  Sex: Male

DRUGS (12)
  1. UNITUXIN [Suspect]
     Active Substance: DINUTUXIMAB
     Indication: Product used for unknown indication
     Dosage: UNK, CYCLICAL (CYCLE 1)
     Route: 041
     Dates: start: 2021, end: 2021
  2. UNITUXIN [Suspect]
     Active Substance: DINUTUXIMAB
     Dosage: UNK, CYCLICAL (CYCLE 2)
     Route: 041
     Dates: start: 20211115, end: 20211118
  3. UNITUXIN [Suspect]
     Active Substance: DINUTUXIMAB
     Dosage: UNK, CYCLICAL (CYCLE 3)
     Route: 041
     Dates: start: 20211220, end: 20211223
  4. UNITUXIN [Suspect]
     Active Substance: DINUTUXIMAB
     Dosage: UNK, CYCLICAL (CYCLE 4)
     Route: 041
     Dates: start: 20220131, end: 20220203
  5. UNITUXIN [Suspect]
     Active Substance: DINUTUXIMAB
     Dosage: UNK, CYCLICAL (CYCLE 5)
     Route: 041
     Dates: start: 20220228, end: 20220303
  6. FILGRASTIM [Suspect]
     Active Substance: FILGRASTIM
     Indication: Product used for unknown indication
     Dosage: UNK
     Route: 065
  7. TECELEUKIN [Suspect]
     Active Substance: TECELEUKIN
     Indication: Product used for unknown indication
     Dosage: UNK
     Route: 065
  8. MORPHINE HYDROCHLORIDE [Concomitant]
     Active Substance: MORPHINE HYDROCHLORIDE
     Indication: Back pain
     Dosage: UNK
     Route: 065
  9. MORPHINE HYDROCHLORIDE [Concomitant]
     Active Substance: MORPHINE HYDROCHLORIDE
     Dosage: UNK
     Route: 065
     Dates: start: 20211220, end: 20211221
  10. MORPHINE HYDROCHLORIDE [Concomitant]
     Active Substance: MORPHINE HYDROCHLORIDE
     Dosage: UNK (DOSE INCREASED)
     Route: 065
  11. FLURBIPROFEN AXETIL [Concomitant]
     Active Substance: FLURBIPROFEN AXETIL
     Indication: Product used for unknown indication
     Dosage: UNK
     Route: 065
  12. CEFOZOPRAN HYDROCHLORIDE [Concomitant]
     Active Substance: CEFOZOPRAN HYDROCHLORIDE
     Indication: Product used for unknown indication
     Dosage: UNK
     Route: 065

REACTIONS (21)
  - Enterocolitis [Recovered/Resolved]
  - Ileus paralytic [Not Recovered/Not Resolved]
  - Pyrexia [Recovering/Resolving]
  - Back pain [Recovered/Resolved]
  - Abdominal pain [Recovered/Resolved]
  - Diarrhoea [Recovered/Resolved]
  - Pleural effusion [Recovered/Resolved]
  - Platelet count decreased [Recovered/Resolved]
  - Oxygen saturation decreased [Recovered/Resolved]
  - C-reactive protein increased [Recovered/Resolved]
  - Oedema [Recovered/Resolved]
  - White blood cell count increased [Recovering/Resolving]
  - Eosinophil count increased [Recovering/Resolving]
  - Hypophosphataemia [Recovered/Resolved]
  - Gastroenteritis [Recovered/Resolved]
  - Dyspnoea [Recovered/Resolved]
  - Nausea [Recovered/Resolved]
  - Prothrombin level decreased [Recovered/Resolved]
  - Tachycardia [Recovering/Resolving]
  - Dysuria [Recovered/Resolved]
  - Arthralgia [Not Recovered/Not Resolved]

NARRATIVE: CASE EVENT DATE: 20210101
